FAERS Safety Report 5357325-5 (Version None)
Quarter: 2007Q2

REPORT INFORMATION
  Report Type: 
  Country: None (occurrence: None)
  Receive Date: 20070612
  Receipt Date: 20070612
  Transmission Date: 20071010
  Serious: No
  Sender: FDA-Public Use
  Company Number: None

PATIENT

DRUGS (2)
  1. PROAIR HFA [Suspect]
     Indication: BRONCHITIS CHRONIC
     Dosage: 1 TO 2 INHALATIONS PRN INHAL
     Route: 055
     Dates: start: 20070101, end: 20070610
  2. PROAIR HFA [Suspect]
     Indication: CHRONIC OBSTRUCTIVE PULMONARY DISEASE
     Dosage: 1 TO 2 INHALATIONS PRN INHAL
     Route: 055
     Dates: start: 20070101, end: 20070610

REACTIONS (3)
  - DRUG EFFECT DECREASED [None]
  - INCORRECT DOSE ADMINISTERED [None]
  - PHARMACEUTICAL PRODUCT COMPLAINT [None]
